FAERS Safety Report 4595543-4 (Version None)
Quarter: 2005Q1

REPORT INFORMATION
  Report Type: 
  Country: None (occurrence: None)
  Receive Date: 20050224
  Receipt Date: 20050203
  Transmission Date: 20050727
  Serious: Yes (Other)
  Sender: FDA-Public Use
  Company Number: USA031049300

PATIENT
  Age: 73 Year
  Sex: Female
  Weight: 73 kg

DRUGS (6)
  1. FORTEO [Suspect]
     Indication: OSTEOPOROSIS
     Dosage: 20 UG DAY
     Dates: start: 20031003
  2. VICODIN [Concomitant]
  3. FLEXERIL [Concomitant]
  4. PRAVACHOL [Concomitant]
  5. VITAMIN [Concomitant]
  6. BABY ASPIRIN 9ACETYLSALICYLIC ACID) [Concomitant]

REACTIONS (4)
  - BLOOD PRESSURE INCREASED [None]
  - GASTROINTESTINAL CARCINOMA [None]
  - LYMPHOMA [None]
  - PHARMACEUTICAL PRODUCT COMPLAINT [None]
